FAERS Safety Report 4604344-X (Version None)
Quarter: 2005Q1

REPORT INFORMATION
  Report Type: 
  Country: None (occurrence: None)
  Receive Date: 20050214
  Receipt Date: 20041101
  Transmission Date: 20050727
  Serious: No
  Sender: FDA-Public Use
  Company Number: USA041183967

PATIENT
  Age: 51 Year
  Sex: Male
  Weight: 95 kg

DRUGS (3)
  1. CIALIS [Suspect]
     Dosage: 20 MG
     Dates: start: 20041030
  2. WELLBUTRIN SR [Concomitant]
  3. MS CONTIN [Concomitant]

REACTIONS (3)
  - NASAL CONGESTION [None]
  - SINUS HEADACHE [None]
  - SINUSITIS [None]
